FAERS Safety Report 6083867-3 (Version None)
Quarter: 2009Q1

REPORT INFORMATION
  Report Type: 
  Country: None (occurrence: None)
  Receive Date: 20090219
  Receipt Date: 20090210
  Transmission Date: 20090719
  Serious: Yes (Death, Hospitalization)
  Sender: FDA-Public Use
  Company Number: US-ABBOTT-09P-163-0502668-00

PATIENT
  Sex: Female

DRUGS (6)
  1. VICODIN [Suspect]
     Indication: PAIN
     Route: 048
  2. FENTANYL [Suspect]
     Indication: SPINAL COLUMN STENOSIS
     Dosage: 1 PATCH
     Route: 062
     Dates: start: 20081101, end: 20081129
  3. GLIPIZIDE [Concomitant]
     Indication: DRUG USE FOR UNKNOWN INDICATION
     Dates: start: 19980101, end: 20081101
  4. LEVOTHYROXINE SODIUM [Concomitant]
     Indication: DRUG USE FOR UNKNOWN INDICATION
     Dates: start: 19930101, end: 20081101
  5. MAGACE [Concomitant]
     Indication: DRUG USE FOR UNKNOWN INDICATION
     Dates: start: 20070101, end: 20080101
  6. CENTRUM SILVER [Concomitant]
     Indication: DRUG USE FOR UNKNOWN INDICATION

REACTIONS (4)
  - CARDIAC ARREST [None]
  - CORONARY ARTERY DISEASE [None]
  - DIVERTICULUM [None]
  - RECTAL HAEMORRHAGE [None]
